FAERS Safety Report 8719705 (Version 3)
Quarter: 2013Q1

REPORT INFORMATION
  Report Type: Spontaneous
  Country: IE (occurrence: IE)
  Receive Date: 20120813
  Receipt Date: 20130130
  Transmission Date: 20140127
  Serious: Yes (Other)
  Sender: FDA-Public Use
  Company Number: PHFR2012IE004415

PATIENT
  Age: 39 Year
  Sex: Male
  Weight: 117 kg

DRUGS (4)
  1. CLOZARIL [Suspect]
     Indication: SCHIZOPHRENIA
     Dosage: UNK
     Route: 048
     Dates: start: 20070329
  2. CLOZARIL [Suspect]
     Dosage: 300 MG
     Route: 048
     Dates: start: 20080417
  3. CLOZARIL [Suspect]
     Dosage: 275 MG, QD
  4. VALPROATE SODIUM [Concomitant]

REACTIONS (5)
  - Back injury [Recovering/Resolving]
  - Dyskinesia [Recovered/Resolved]
  - Back pain [Recovered/Resolved]
  - Anticonvulsant drug level decreased [Unknown]
  - Antipsychotic drug level above therapeutic [Recovering/Resolving]
